FAERS Safety Report 23607869 (Version 2)
Quarter: 2024Q1

REPORT INFORMATION
  Report Type: Spontaneous
  Country: US (occurrence: US)
  Receive Date: 20240307
  Receipt Date: 20240312
  Transmission Date: 20240410
  Serious: No
  Sender: FDA-Public Use
  Company Number: US-PFIZER INC-PV202400018939

PATIENT
  Age: 73 Year
  Sex: Male

DRUGS (2)
  1. IBRANCE [Suspect]
     Active Substance: PALBOCICLIB
     Indication: Breast cancer male
     Dosage: TAKE 1 TABLET (125 MG TOTAL) DAILY FOR 21 DAYS OUT OF A 28 DAY CYCLE (THREE WEEKS ON, ONE WEEK OFF)
     Route: 048
  2. NEURONTIN [Concomitant]
     Active Substance: GABAPENTIN
     Dosage: TAKE 1 CAPSULE (300 MG TOTAL) IN THE MORNING AND AT BEDTIME
     Route: 048

REACTIONS (1)
  - Illness [Unknown]
